FAERS Safety Report 4864349-0 (Version None)
Quarter: 2005Q4

REPORT INFORMATION
  Report Type: 
  Country: None (occurrence: None)
  Receive Date: 20051222
  Receipt Date: 20051005
  Transmission Date: 20060501
  Serious: Yes (Hospitalization)
  Sender: FDA-Public Use
  Company Number: US-MERCK-0510USA04463

PATIENT
  Age: 26 Year
  Sex: Female

DRUGS (1)
  1. VIOXX [Suspect]
     Indication: TENDONITIS
     Route: 048
     Dates: start: 20040101

REACTIONS (10)
  - ABDOMINAL PAIN UPPER [None]
  - APPENDIX DISORDER [None]
  - COUGH [None]
  - DIARRHOEA [None]
  - LOBAR PNEUMONIA [None]
  - MUSCULOSKELETAL CHEST PAIN [None]
  - NAUSEA [None]
  - OESOPHAGEAL SPASM [None]
  - SINUS DISORDER [None]
  - TOOTH ABSCESS [None]
